FAERS Safety Report 24622212 (Version 1)
Quarter: 2024Q4

REPORT INFORMATION
  Report Type: Spontaneous
  Country: BR (occurrence: BR)
  Receive Date: 20241114
  Receipt Date: 20241114
  Transmission Date: 20250114
  Serious: Yes (Hospitalization, Other)
  Sender: CURRAX PHARMACEUTICALS
  Company Number: BR-NALPROPION PHARMACEUTICALS INC.-BR-2024CUR004909

PATIENT
  Age: 61 Year
  Sex: Female

DRUGS (1)
  1. CONTRAVE [Suspect]
     Active Substance: BUPROPION HYDROCHLORIDE\NALTREXONE HYDROCHLORIDE
     Indication: Weight decreased
     Dosage: 16.0 MILLIGRAM(S) (8 MILLIGRAM(S), 2 IN 1 DAY)
     Route: 048
     Dates: start: 20230701

REACTIONS (5)
  - Blepharoplasty [Recovered/Resolved]
  - Facet joint block [Recovered/Resolved]
  - Blood pressure decreased [Recovered/Resolved]
  - Loss of consciousness [Recovered/Resolved]
  - Headache [Recovered/Resolved]

NARRATIVE: CASE EVENT DATE: 20230701
